FAERS Safety Report 4607977-X (Version None)
Quarter: 2005Q2

REPORT INFORMATION
  Report Type: 
  Country: None (occurrence: None)
  Receive Date: 20050303
  Receipt Date: 20041028
  Transmission Date: 20051028
  Serious: No
  Sender: FDA-Public Use
  Company Number: 210024

PATIENT
  Age: 45 Year
  Sex: Male
  Weight: 108.8 kg

DRUGS (5)
  1. XOLAIR [Suspect]
     Indication: ASTHMA
     Dosage: PWDR + SOLVENT, INJECTION SOLN, 150 MG
     Dates: start: 20040506
  2. ALBUTEROL (ALBUTEROL, ALBUTEROL SULFATE) [Concomitant]
  3. PREDNISONE [Concomitant]
  4. ACTONEL [Concomitant]
  5. PRILOSEC [Concomitant]

REACTIONS (2)
  - BACK PAIN [None]
  - PAIN IN EXTREMITY [None]
